FAERS Safety Report 9386037 (Version 1)
Quarter: 2013Q3

REPORT INFORMATION
  Report Type: Spontaneous
  Country: GB (occurrence: GB)
  Receive Date: 20130705
  Receipt Date: 20130705
  Transmission Date: 20140515
  Serious: Yes (Hospitalization, Other)
  Sender: FDA-Public Use
  Company Number: GB-SANOFI-AVENTIS-2013SA065103

PATIENT
  Age: 1 Month
  Sex: Male

DRUGS (6)
  1. ENOXAPARIN SODIUM [Suspect]
     Indication: FOETAL EXPOSURE DURING PREGNANCY
     Dosage: UNKNOWN DOSING DETAILS
     Route: 064
  2. SUBUTEX [Suspect]
     Indication: FOETAL EXPOSURE DURING PREGNANCY
     Dosage: 20 MG DAILY
     Route: 064
     Dates: start: 20060825, end: 20070519
  3. FOLIC ACID [Suspect]
     Indication: FOETAL EXPOSURE DURING PREGNANCY
     Dosage: MOTHER TOOK ONE DOSAGE FORM DAILY
     Route: 064
  4. DIAZEPAM [Suspect]
     Indication: FOETAL EXPOSURE DURING PREGNANCY
     Dosage: MOTHER TOOK 30 MG DAILY
     Route: 064
     Dates: start: 20060825, end: 20061122
  5. NICOTINE [Suspect]
     Indication: FOETAL EXPOSURE DURING PREGNANCY
     Dosage: MOTHER SMOKED UP TO 15 CIGARETTES DAILY
     Route: 064
  6. BENZODIAZEPINE DERIVATIVES [Suspect]
     Indication: FOETAL EXPOSURE DURING PREGNANCY
     Route: 064
     Dates: end: 20061122

REACTIONS (7)
  - Drug withdrawal syndrome neonatal [Recovered/Resolved]
  - Temperature intolerance [Recovered/Resolved]
  - Feeling jittery [Recovered/Resolved]
  - Pyrexia [Recovered/Resolved]
  - Vomiting [Recovered/Resolved]
  - Acne infantile [Unknown]
  - Foetal exposure during pregnancy [Unknown]
